FAERS Safety Report 9405046 (Version 2)
Quarter: 2013Q4

REPORT INFORMATION
  Report Type: Spontaneous
  Country: US (occurrence: US)
  Receive Date: 20130717
  Receipt Date: 20131021
  Transmission Date: 20140711
  Serious: No
  Sender: FDA-Public Use
  Company Number: US-BRISTOL-MYERS SQUIBB COMPANY-18854075

PATIENT
  Sex: Female

DRUGS (1)
  1. YERVOY [Suspect]
     Indication: MALIGNANT MELANOMA
     Dosage: LAST DOSE (4TH DOSE): 23APR2013
     Route: 042
     Dates: start: 201302

REACTIONS (3)
  - Carpal tunnel syndrome [Unknown]
  - Hypoaesthesia [Unknown]
  - Dysmenorrhoea [Unknown]
